FAERS Safety Report 14152076 (Version 1)
Quarter: 2017Q4

REPORT INFORMATION
  Report Type: Spontaneous
  Country: US (occurrence: None)
  Receive Date: 20171101
  Receipt Date: 20171101
  Transmission Date: 20180321
  Serious: Yes (Life-Threatening, Hospitalization)
  Sender: FDA-Public Use
  Company Number: None

PATIENT
  Age: 29 Year
  Sex: Male
  Weight: 84.1 kg

DRUGS (12)
  1. INDOMETHACIN. [Concomitant]
     Active Substance: INDOMETHACIN
  2. OMEPRAZOLE. [Concomitant]
     Active Substance: OMEPRAZOLE
  3. GABAPENTIN. [Concomitant]
     Active Substance: GABAPENTIN
  4. FENOFIBRATE. [Suspect]
     Active Substance: FENOFIBRATE
     Route: 048
  5. DOCUSATE/SENNA [Concomitant]
     Active Substance: DOCUSATE SODIUM\SENNA LEAF
  6. MORPHINE IR [Concomitant]
     Active Substance: MORPHINE
  7. ONDANSETRON [Concomitant]
     Active Substance: ONDANSETRON
  8. BUPROPIONM [Concomitant]
  9. CITALOPRAM [Concomitant]
     Active Substance: CITALOPRAM HYDROBROMIDE
  10. AMITRIPTYLINE [Concomitant]
     Active Substance: AMITRIPTYLINE
  11. PRAZOSIN. [Concomitant]
     Active Substance: PRAZOSIN
  12. ZOLPIDEM [Concomitant]
     Active Substance: ZOLPIDEM\ZOLPIDEM TARTRATE

REACTIONS (2)
  - Rash [None]
  - Anaphylactic reaction [None]

NARRATIVE: CASE EVENT DATE: 20140721
